FAERS Safety Report 25586793 (Version 1)
Quarter: 2025Q3

REPORT INFORMATION
  Report Type: Spontaneous
  Country: US (occurrence: US)
  Receive Date: 20250721
  Receipt Date: 20250721
  Transmission Date: 20251021
  Serious: No
  Sender: ELI LILLY AND COMPANY
  Company Number: US-ELI_LILLY_AND_COMPANY-US202507016988

PATIENT
  Age: 63 Year
  Sex: Male

DRUGS (5)
  1. DULOXETINE HYDROCHLORIDE [Suspect]
     Active Substance: DULOXETINE HYDROCHLORIDE
     Indication: Urinary incontinence
     Route: 065
  2. ORGOVYX [Suspect]
     Active Substance: RELUGOLIX
     Indication: Prostate cancer
     Dosage: 120 MG, DAILY
     Route: 048
     Dates: start: 20231214
  3. ORGOVYX [Suspect]
     Active Substance: RELUGOLIX
     Route: 065
  4. ORGOVYX [Suspect]
     Active Substance: RELUGOLIX
     Route: 048
     Dates: start: 20231214
  5. ALENDRONATE [Concomitant]
     Active Substance: ALENDRONATE SODIUM
     Indication: Product used for unknown indication
     Route: 065

REACTIONS (10)
  - Eye infection [Unknown]
  - Posture abnormal [Unknown]
  - Vitamin D deficiency [Unknown]
  - Blood calcium decreased [Unknown]
  - Urinary incontinence [Unknown]
  - Off label use [Unknown]
  - Blood glucose increased [Not Recovered/Not Resolved]
  - Oropharyngeal pain [Unknown]
  - Somnolence [Unknown]
  - Fatigue [Unknown]

NARRATIVE: CASE EVENT DATE: 20240201
